FAERS Safety Report 10664157 (Version 1)
Quarter: 2014Q4

REPORT INFORMATION
  Report Type: Spontaneous
  Country: US (occurrence: None)
  Receive Date: 20141205
  Receipt Date: 20141205
  Transmission Date: 20150529
  Serious: No
  Sender: FDA-Public Use
  Company Number: 163-POMAL-14073314

PATIENT
  Age: 63 Year
  Sex: Male

DRUGS (1)
  1. POMALYST [Suspect]
     Active Substance: POMALIDOMIDE
     Indication: PLASMA CELL MYELOMA
     Dosage: 2MG 1 IN 1D PO
     Route: 048
     Dates: start: 201406

REACTIONS (8)
  - Nausea [None]
  - Platelet count decreased [None]
  - Rash [None]
  - Abdominal pain upper [None]
  - Pain in extremity [None]
  - Neutrophil count decreased [None]
  - Diarrhoea [None]
  - Bone pain [None]

NARRATIVE: CASE EVENT DATE: 2014
